FAERS Safety Report 26186320 (Version 1)
Quarter: 2025Q4

REPORT INFORMATION
  Report Type: Report from Study
  Country: EU (occurrence: EU)
  Receive Date: 20251222
  Receipt Date: 20251222
  Transmission Date: 20260118
  Serious: Yes (Hospitalization)
  Sender: ABBVIE
  Company Number: EU-ABBVIE-6599763

PATIENT
  Age: 72 Year
  Sex: Female

DRUGS (5)
  1. FOSCARBIDOPA\FOSLEVODOPA [Suspect]
     Active Substance: FOSCARBIDOPA\FOSLEVODOPA
     Indication: Parkinson^s disease
     Dosage: EXTRA DOSE: 0.2 LOW RATE: 0.26 HIGH RATE: 0.37 BASE RATE: 0.34 LOADING DOSE: 0.8
     Route: 058
     Dates: start: 20250825
  2. BENSERAZIDE\LEVODOPA [Concomitant]
     Active Substance: BENSERAZIDE\LEVODOPA
     Indication: Parkinson^s disease
  3. BENSERAZIDE\LEVODOPA [Concomitant]
     Active Substance: BENSERAZIDE\LEVODOPA
     Indication: Parkinson^s disease
     Dosage: 7X FROM 6AM TO 9PM
  4. XADAGO [Concomitant]
     Active Substance: SAFINAMIDE MESYLATE
     Indication: Parkinson^s disease
  5. PRAMIPEXOLE [Concomitant]
     Active Substance: PRAMIPEXOLE
     Indication: Parkinson^s disease
     Dosage: (OU MIRAPEXIN)

REACTIONS (4)
  - Pyrexia [Unknown]
  - Infusion site inflammation [Unknown]
  - Infusion site infection [Unknown]
  - Infusion site pain [Unknown]

NARRATIVE: CASE EVENT DATE: 20250101
